FAERS Safety Report 8803303 (Version 2)
Quarter: 2015Q1

REPORT INFORMATION
  Report Type: Report from Study
  Country: US (occurrence: US)
  Receive Date: 20120924
  Receipt Date: 20150309
  Transmission Date: 20150721
  Serious: Yes (Death, Other)
  Sender: FDA-Public Use
  Company Number: US-ROCHE-1104261

PATIENT
  Sex: Female

DRUGS (20)
  1. IRINOTECAN [Concomitant]
     Active Substance: IRINOTECAN
     Route: 042
  2. ATIVAN [Concomitant]
     Active Substance: LORAZEPAM
     Route: 042
  3. ATROPINE [Concomitant]
     Active Substance: ATROPINE
     Route: 042
  4. ALOXI [Concomitant]
     Active Substance: PALONOSETRON HYDROCHLORIDE
  5. DURAGESIC [Concomitant]
     Active Substance: FENTANYL
  6. AMBIEN [Concomitant]
     Active Substance: ZOLPIDEM TARTRATE
     Route: 065
  7. LEUCOVORIN [Concomitant]
     Active Substance: LEUCOVORIN
     Route: 065
  8. DECADRON [Concomitant]
     Active Substance: DEXAMETHASONE
  9. PROCRIT [Concomitant]
     Active Substance: ERYTHROPOIETIN
     Route: 065
  10. ZOLOFT [Concomitant]
     Active Substance: SERTRALINE HYDROCHLORIDE
     Route: 065
  11. LEUCOVORIN [Concomitant]
     Active Substance: LEUCOVORIN
     Route: 065
  12. 5-FLUOROURACIL [Concomitant]
     Active Substance: FLUOROURACIL
     Route: 065
  13. MORPHINE SULFATE IR [Concomitant]
     Route: 065
  14. IMODIUM [Concomitant]
     Active Substance: LOPERAMIDE HYDROCHLORIDE
  15. IRINOTECAN [Concomitant]
     Active Substance: IRINOTECAN
     Route: 042
  16. AVASTIN [Suspect]
     Active Substance: BEVACIZUMAB
     Indication: RECTOSIGMOID CANCER
     Route: 042
     Dates: start: 20040526
  17. MORPHINE SULFATE IR [Concomitant]
     Route: 065
  18. ZOMETA [Concomitant]
     Active Substance: ZOLEDRONIC ACID
     Route: 042
  19. AVINZA [Concomitant]
     Active Substance: MORPHINE SULFATE
     Route: 065
  20. LEVAQUIN [Concomitant]
     Active Substance: LEVOFLOXACIN

REACTIONS (24)
  - Gastrointestinal perforation [Unknown]
  - Depression [Unknown]
  - Mental impairment [Unknown]
  - Anastomotic complication [Unknown]
  - Hypotension [Unknown]
  - Coccydynia [Unknown]
  - Metastases to bone [Unknown]
  - Asthenia [Unknown]
  - Fatigue [Unknown]
  - Chromaturia [Unknown]
  - Insomnia [Unknown]
  - Dehydration [Unknown]
  - Abdominal discomfort [Unknown]
  - Diarrhoea [Unknown]
  - Musculoskeletal pain [Unknown]
  - Pain [Unknown]
  - Disease progression [Unknown]
  - Metastatic pain [Unknown]
  - Death [Fatal]
  - Anaemia [Unknown]
  - Proctalgia [Unknown]
  - Fistula [Unknown]
  - Back pain [Unknown]
  - Dysuria [Unknown]
